FAERS Safety Report 6220031-9 (Version None)
Quarter: 2009Q2

REPORT INFORMATION
  Report Type: 
  Country: None (occurrence: None)
  Receive Date: 20090609
  Receipt Date: 20090528
  Transmission Date: 20091009
  Serious: Yes (Disabling)
  Sender: FDA-Public Use
  Company Number: PHHY2009GR20835

PATIENT
  Sex: Female

DRUGS (3)
  1. DIOVAN HCT [Suspect]
     Indication: HYPERTENSION
     Dosage: 320 MG/DAILY
     Route: 048
     Dates: start: 20090511, end: 20090527
  2. FISIOTENS [Concomitant]
     Dosage: 0.4 MG/DAY
  3. ANTIDIABETIC [Concomitant]

REACTIONS (4)
  - BONE PAIN [None]
  - INSOMNIA [None]
  - MUSCLE RIGIDITY [None]
  - PAIN IN EXTREMITY [None]
